FAERS Safety Report 8403086-2 (Version None)
Quarter: 2012Q2

REPORT INFORMATION
  Report Type: 
  Country: None (occurrence: None)
  Receive Date: 20120601
  Receipt Date: 20120523
  Transmission Date: 20120825
  Serious: Yes (Hospitalization)
  Sender: FDA-Public Use
  Company Number: US-ABBOTT-12P-163-0938344-00

PATIENT
  Sex: Female

DRUGS (4)
  1. SYNTHROID [Suspect]
     Indication: HYPOTHYROIDISM
     Route: 048
  2. SYNTHROID [Suspect]
     Route: 048
  3. CLOZARIL [Concomitant]
     Indication: PRODUCT USED FOR UNKNOWN INDICATION
  4. ESTRADIOL [Concomitant]
     Indication: PRODUCT USED FOR UNKNOWN INDICATION

REACTIONS (3)
  - WHITE BLOOD CELL COUNT DECREASED [None]
  - WHITE BLOOD CELL COUNT ABNORMAL [None]
  - MALAISE [None]
